FAERS Safety Report 20911582 (Version 3)
Quarter: 2022Q3

REPORT INFORMATION
  Report Type: Report from Study
  Country: AR (occurrence: None)
  Receive Date: 20220603
  Receipt Date: 20220831
  Transmission Date: 20221026
  Serious: Yes (Hospitalization)
  Sender: FDA-Public Use
  Company Number: AR-Merck Healthcare KGaA-9326421

PATIENT
  Age: 66 Year
  Sex: Female

DRUGS (1)
  1. REBIF [Suspect]
     Active Substance: INTERFERON BETA-1A
     Indication: Multiple sclerosis
     Route: 058
     Dates: start: 20180108

REACTIONS (3)
  - Neoplasm malignant [Recovering/Resolving]
  - Metastases to lymph nodes [Recovering/Resolving]
  - Product dose omission issue [Not Recovered/Not Resolved]

NARRATIVE: CASE EVENT DATE: 20220301
